FAERS Safety Report 8815223 (Version 3)
Quarter: 2013Q1

REPORT INFORMATION
  Report Type: Report from Study
  Country: US (occurrence: US)
  Receive Date: 20120928
  Receipt Date: 20130320
  Transmission Date: 20140127
  Serious: Yes (Other)
  Sender: FDA-Public Use
  Company Number: US-PURDUE-USA-2012-0093726

PATIENT
  Age: 54 None
  Sex: Male

DRUGS (3)
  1. OXYCONTIN (NDA 22-272) [Suspect]
     Indication: PRODUCT USED FOR UNKNOWN INDICATION
     Dosage: 40 MG, Q8H
     Route: 048
  2. OXYCONTIN (NDA 22-272) [Suspect]
     Dosage: 60 MG, Q8H
     Route: 048
  3. MOTRIN [Suspect]
     Indication: PAIN
     Dosage: 200 MG, PRN, 8 TABLETS OER DAY

REACTIONS (5)
  - Renal failure [Not Recovered/Not Resolved]
  - Cataract [Not Recovered/Not Resolved]
  - Retinal detachment [Recovered/Resolved]
  - Azotaemia [Unknown]
  - Mental status changes [Unknown]
